FAERS Safety Report 6219012-0 (Version None)
Quarter: 2009Q2

REPORT INFORMATION
  Report Type: 
  Country: None (occurrence: None)
  Receive Date: 20090608
  Receipt Date: 20090526
  Transmission Date: 20091009
  Serious: Yes (Other)
  Sender: FDA-Public Use
  Company Number: IE-AMGEN-QUU348641

PATIENT
  Sex: Male

DRUGS (6)
  1. NEULASTA [Suspect]
     Indication: CHEMOTHERAPY
     Route: 065
  2. NEUPOGEN [Suspect]
     Indication: CHEMOTHERAPY
  3. ADRIAMYCIN RDF [Concomitant]
  4. BLEOMYCIN SULFATE [Concomitant]
  5. VINBLASTINE [Concomitant]
  6. DACARBAZINE [Concomitant]

REACTIONS (3)
  - CONFUSIONAL STATE [None]
  - NEUTROPHIL COUNT INCREASED [None]
  - WHITE BLOOD CELL COUNT INCREASED [None]
